FAERS Safety Report 12375923 (Version 2)
Quarter: 2016Q2

REPORT INFORMATION
  Report Type: Spontaneous
  Country: US (occurrence: US)
  Receive Date: 20160517
  Receipt Date: 20160609
  Transmission Date: 20160815
  Serious: Yes (Hospitalization, Other)
  Sender: FDA-Public Use
  Company Number: US-MDT-ADR-2016-00877

PATIENT
  Age: 28 Year
  Sex: Male

DRUGS (20)
  1. AMBIEN [Suspect]
     Active Substance: ZOLPIDEM TARTRATE
     Dosage: 10 MG/DAY
     Route: 048
  2. LIORESAL [Suspect]
     Active Substance: BACLOFEN
     Dosage: 300 MCG/DAY
     Route: 037
     Dates: start: 20160502
  3. HYDROCHLOROTHIAZIDE (HYDRODIURIL ESIDRIX) [Suspect]
     Active Substance: HYDROCHLOROTHIAZIDE
     Dosage: 25 MG/DAY
     Route: 048
  4. MULTIVITIMIN [Suspect]
     Active Substance: VITAMINS
     Route: 048
  5. CYMBALTA [Suspect]
     Active Substance: DULOXETINE HYDROCHLORIDE
     Dosage: 60 MG CAPSULE, 1 CAP 2X/DAY
     Route: 048
  6. ENDOCET [Suspect]
     Active Substance: ACETAMINOPHEN\OXYCODONE HYDROCHLORIDE
     Dosage: 10-325 MG TAB, ONCE EVERY 4 HOURS
     Route: 048
  7. CRANBERRY. [Suspect]
     Active Substance: CRANBERRY
     Dosage: (500 MG CAP/2000 MG TABLET DAILY)
     Route: 048
  8. OXYBUTYNIN [Suspect]
     Active Substance: OXYBUTYNIN
     Dosage: 5 MG/DAY
     Route: 048
  9. LIORESAL [Suspect]
     Active Substance: BACLOFEN
     Dosage: 12 MCG/DAY
     Route: 037
     Dates: start: 20160501
  10. TIZANIDINE. [Suspect]
     Active Substance: TIZANIDINE
     Dosage: 1.5 TAB/4X DAY
     Route: 048
  11. COLACE [Suspect]
     Active Substance: DOCUSATE SODIUM
     Dosage: 1 CAP EVERY OTHER DAY
     Route: 048
  12. TRAZODONE [Suspect]
     Active Substance: TRAZODONE HYDROCHLORIDE
     Dosage: 50 MG/DAY
     Route: 048
  13. PRILOSEC [Suspect]
     Active Substance: OMEPRAZOLE MAGNESIUM
     Dosage: 20 MG/DAY
     Route: 048
  14. TIZANIDINE. [Suspect]
     Active Substance: TIZANIDINE
     Dosage: 6 MG/4X DAILY AS NEEDED
     Route: 048
  15. LIORESAL [Suspect]
     Active Substance: BACLOFEN
     Dosage: 944.3 MCG/DAY
     Route: 037
  16. BACLOFEN. [Suspect]
     Active Substance: BACLOFEN
     Dosage: 10 MG/DAY
     Route: 048
  17. DULCOLAX (BISACODYL) [Suspect]
     Active Substance: BISACODYL
     Dosage: ONCE EVERY OTHER DAY
     Route: 054
  18. LIORESAL [Suspect]
     Active Substance: BACLOFEN
     Dosage: 1/2 TAB AM
     Route: 048
  19. XANAX [Suspect]
     Active Substance: ALPRAZOLAM
     Dosage: 2 MG ORAL, ONE TAB/3X DAY
     Route: 048
  20. GABAPENTIN. [Suspect]
     Active Substance: GABAPENTIN
     Dosage: 300 MG ORAL CAPSULE (2 CAPS TWICE DAILY AND 3 CAPS AT NIGHT)
     Route: 048

REACTIONS (10)
  - Muscle spasms [Recovering/Resolving]
  - Drug withdrawal syndrome [Recovering/Resolving]
  - Movement disorder [Recovering/Resolving]
  - Urinary tract infection [Recovered/Resolved]
  - Discomfort [Recovering/Resolving]
  - Pain in extremity [Recovering/Resolving]
  - Hypertonia [Recovering/Resolving]
  - Muscle spasticity [Recovering/Resolving]
  - Hypotension [Recovering/Resolving]
  - Muscle rigidity [Recovering/Resolving]

NARRATIVE: CASE EVENT DATE: 201605
